FAERS Safety Report 15119449 (Version 1)
Quarter: 2018Q3

REPORT INFORMATION
  Report Type: Report from Study
  Country: JP (occurrence: JP)
  Receive Date: 20180709
  Receipt Date: 20180709
  Transmission Date: 20181010
  Serious: Yes (Hospitalization, Other)
  Sender: FDA-Public Use
  Company Number: JP-ACCORD-069292

PATIENT
  Age: 85 Year
  Sex: Male
  Weight: 44.3 kg

DRUGS (6)
  1. DONEPEZIL/DONEPEZIL HYDROCHLORIDE [Suspect]
     Active Substance: DONEPEZIL HYDROCHLORIDE
     Indication: DEMENTIA ALZHEIMER^S TYPE
  2. TULOBUTEROL/TULOBUTEROL HYDROCHLORIDE [Concomitant]
     Dosage: TULOBUTEROL TAPE
  3. NAFTOPIDIL [Concomitant]
     Active Substance: NAFTOPIDIL
  4. PHENYTOIN. [Concomitant]
     Active Substance: PHENYTOIN
  5. URSODEOXYCHOLATE SODIUM/URSODEOXYCHOLIC ACID [Concomitant]
  6. CHLORMADINONE [Concomitant]
     Active Substance: CHLORMADINONE

REACTIONS (3)
  - Pneumonia bacterial [Unknown]
  - Hypophagia [Recovering/Resolving]
  - Depressed level of consciousness [Recovering/Resolving]
